FAERS Safety Report 13782188 (Version 2)
Quarter: 2017Q3

REPORT INFORMATION
  Report Type: Spontaneous
  Country: US (occurrence: US)
  Receive Date: 20170724
  Receipt Date: 20170728
  Transmission Date: 20171127
  Serious: No
  Sender: FDA-Public Use
  Company Number: US-BRISTOL-MYERS SQUIBB COMPANY-BMS-2017-065358

PATIENT
  Sex: Female
  Weight: 73.3 kg

DRUGS (1)
  1. ELIQUIS [Suspect]
     Active Substance: APIXABAN
     Indication: FACTOR V DEFICIENCY
     Dosage: 2.5 MG, BID
     Route: 065

REACTIONS (1)
  - Product use in unapproved indication [Unknown]
